FAERS Safety Report 19127076 (Version 1)
Quarter: 2021Q2

REPORT INFORMATION
  Report Type: Spontaneous
  Country: US (occurrence: US)
  Receive Date: 20210413
  Receipt Date: 20210413
  Transmission Date: 20210717
  Serious: No
  Sender: FDA-Public Use
  Company Number: None

PATIENT
  Age: 47 Year
  Sex: Female

DRUGS (2)
  1. HUMIRA [Suspect]
     Active Substance: ADALIMUMAB
     Indication: PSORIATIC ARTHROPATHY
     Route: 058
     Dates: start: 20200715
  2. CELEXA TAB 20MG [Concomitant]

REACTIONS (7)
  - Discomfort [None]
  - Condition aggravated [None]
  - Rash [None]
  - Pain [None]
  - Nausea [None]
  - Skin irritation [None]
  - Vomiting [None]
